FAERS Safety Report 13546544 (Version 1)
Quarter: 2017Q2

REPORT INFORMATION
  Report Type: Spontaneous
  Country: TR (occurrence: TR)
  Receive Date: 20170515
  Receipt Date: 20170515
  Transmission Date: 20170830
  Serious: Yes (Other)
  Sender: FDA-Public Use
  Company Number: TR-PFIZER INC-2017206730

PATIENT
  Age: 5 Year
  Sex: Male
  Weight: 58 kg

DRUGS (2)
  1. LUSTRAL [Suspect]
     Active Substance: SERTRALINE HYDROCHLORIDE
     Indication: DEPRESSION
     Dosage: 100 MG, 1/2 TABLET IN A DAY
     Route: 048
     Dates: start: 20170227, end: 20170307
  2. LUSTRAL [Suspect]
     Active Substance: SERTRALINE HYDROCHLORIDE
     Indication: AGGRESSION

REACTIONS (3)
  - Hypersomnia [Not Recovered/Not Resolved]
  - Yellow skin [Recovered/Resolved with Sequelae]
  - Product use issue [Recovered/Resolved]

NARRATIVE: CASE EVENT DATE: 20170227
